FAERS Safety Report 6146517-3 (Version None)
Quarter: 2009Q2

REPORT INFORMATION
  Report Type: 
  Country: None (occurrence: None)
  Receive Date: 20090403
  Receipt Date: 20090403
  Transmission Date: 20091009
  Serious: Yes (Disabling)
  Sender: FDA-Public Use
  Company Number: None

PATIENT
  Age: 64 Year
  Sex: Female
  Weight: 48.5349 kg

DRUGS (3)
  1. VYTORIN [Suspect]
     Indication: HYPERCHOLESTEROLAEMIA
     Dosage: 10/40 ONE/DAY ORAL
     Route: 048
     Dates: start: 20061221, end: 20070110
  2. CYMBALTA [Concomitant]
  3. AMITRIPTYLINE HCL [Concomitant]

REACTIONS (6)
  - ABASIA [None]
  - GAIT DISTURBANCE [None]
  - NEUROPATHY PERIPHERAL [None]
  - PAIN [None]
  - WALKING AID USER [None]
  - WHEELCHAIR USER [None]
